FAERS Safety Report 19581111 (Version 1)
Quarter: 2021Q3

REPORT INFORMATION
  Report Type: Spontaneous
  Country: US (occurrence: US)
  Receive Date: 20210719
  Receipt Date: 20210719
  Transmission Date: 20211014
  Serious: Yes (Hospitalization)
  Sender: FDA-Public Use
  Company Number: None

PATIENT

DRUGS (1)
  1. DILTIAZEM CD CAP 120MG/24HR [Suspect]
     Active Substance: DILTIAZEM

REACTIONS (2)
  - Heart rate increased [None]
  - Drug ineffective [None]
